FAERS Safety Report 5272929-6 (Version None)
Quarter: 2007Q1

REPORT INFORMATION
  Report Type: 
  Country: None (occurrence: None)
  Receive Date: 20070322
  Receipt Date: 20070125
  Transmission Date: 20070707
  Serious: Yes (Death)
  Sender: FDA-Public Use
  Company Number: JP-AVENTIS-200613810JP

PATIENT
  Age: 79 Year
  Sex: Male

DRUGS (2)
  1. TAXOTERE [Suspect]
     Dosage: DOSE: 2 COURSES
     Route: 041
  2. VINORELBINE [Suspect]
     Dosage: DOSE: 2 COURSES

REACTIONS (1)
  - INTERSTITIAL LUNG DISEASE [None]
